FAERS Safety Report 9869732 (Version 1)
Quarter: 2014Q1

REPORT INFORMATION
  Report Type: Spontaneous
  Country: US (occurrence: US)
  Receive Date: 20140205
  Receipt Date: 20140205
  Transmission Date: 20141002
  Serious: No
  Sender: FDA-Public Use
  Company Number: US-GLAXOSMITHKLINE-A1019280A

PATIENT
  Age: 30 Year
  Sex: Male

DRUGS (4)
  1. ARIXTRA [Suspect]
     Indication: THROMBOSIS PROPHYLAXIS
     Dosage: 2.5MG TWICE PER DAY
     Route: 058
     Dates: start: 20130403, end: 20130407
  2. TYLENOL [Concomitant]
  3. MIRALAX [Concomitant]
  4. SENNA [Concomitant]

REACTIONS (1)
  - Accidental overdose [Recovering/Resolving]
